FAERS Safety Report 21535844 (Version 1)
Quarter: 2022Q4

REPORT INFORMATION
  Report Type: Spontaneous
  Country: US (occurrence: US)
  Receive Date: 20221101
  Receipt Date: 20221101
  Transmission Date: 20230113
  Serious: Yes (Other)
  Sender: FDA-Public Use
  Company Number: US-NOVARTISPH-NVSC2022US243060

PATIENT
  Sex: Female

DRUGS (2)
  1. COSENTYX [Suspect]
     Active Substance: SECUKINUMAB
     Indication: Psoriasis
     Dosage: 300 MG, QMO (FOR 4 YEARS)
     Route: 058
  2. COSENTYX [Suspect]
     Active Substance: SECUKINUMAB
     Dosage: 300 MG, QW (RE-INDUCE LOADING DOSE FOR 5 WEEKS)
     Route: 065

REACTIONS (6)
  - Ankylosing spondylitis [Unknown]
  - Axial spondyloarthritis [Unknown]
  - Back pain [Recovered/Resolved]
  - Upper respiratory tract infection [Recovered/Resolved]
  - Cough [Unknown]
  - Product use issue [Unknown]
